FAERS Safety Report 18336582 (Version 1)
Quarter: 2020Q4

REPORT INFORMATION
  Report Type: Spontaneous
  Country: US (occurrence: US)
  Receive Date: 20201001
  Receipt Date: 20201001
  Transmission Date: 20210113
  Serious: No
  Sender: FDA-Public Use
  Company Number: US-TEIKOKU PHARMA USA-TPU2020-00783

PATIENT
  Sex: Male

DRUGS (2)
  1. 12 OTHER DIFFERENT PILLS [Concomitant]
  2. LIDOCAINE PATCH 5% [Suspect]
     Active Substance: LIDOCAINE
     Indication: DIABETIC NEUROPATHY
     Route: 061

REACTIONS (1)
  - Therapeutic product effect incomplete [Unknown]
